FAERS Safety Report 13934200 (Version 4)
Quarter: 2017Q3

REPORT INFORMATION
  Report Type: Report from Study
  Country: CA (occurrence: CA)
  Receive Date: 20170905
  Receipt Date: 20170926
  Transmission Date: 20171127
  Serious: Yes (Hospitalization)
  Sender: FDA-Public Use
  Company Number: CA-ROCHE-1986440

PATIENT
  Age: 91 Year
  Sex: Male

DRUGS (15)
  1. ESBRIET [Suspect]
     Active Substance: PIRFENIDONE
     Route: 048
     Dates: start: 20151011, end: 20170504
  2. ESBRIET [Suspect]
     Active Substance: PIRFENIDONE
     Route: 048
     Dates: start: 20170821
  3. GLICLAZIDE [Concomitant]
     Active Substance: GLICLAZIDE
  4. METFORMIN [Concomitant]
     Active Substance: METFORMIN HYDROCHLORIDE
  5. OXYGEN. [Concomitant]
     Active Substance: OXYGEN
  6. ESBRIET [Suspect]
     Active Substance: PIRFENIDONE
     Route: 048
     Dates: start: 20170602, end: 2017
  7. DOMPERIDONE [Concomitant]
     Active Substance: DOMPERIDONE
  8. ESBRIET [Suspect]
     Active Substance: PIRFENIDONE
     Route: 048
     Dates: start: 20151004
  9. RABEPRAZOLE [Concomitant]
     Active Substance: RABEPRAZOLE
  10. EZETROL [Concomitant]
     Active Substance: EZETIMIBE
  11. ESBRIET [Suspect]
     Active Substance: PIRFENIDONE
     Indication: IDIOPATHIC PULMONARY FIBROSIS
     Route: 048
     Dates: start: 20150927
  12. ESBRIET [Suspect]
     Active Substance: PIRFENIDONE
     Route: 048
     Dates: start: 20170526
  13. ACETYLSALICYLIC ACID [Concomitant]
     Active Substance: ASPIRIN
     Route: 065
  14. ROSUVASTATIN. [Concomitant]
     Active Substance: ROSUVASTATIN
  15. ADVAIR HFA [Concomitant]
     Active Substance: FLUTICASONE PROPIONATE\SALMETEROL XINAFOATE

REACTIONS (1)
  - Pneumothorax [Unknown]

NARRATIVE: CASE EVENT DATE: 20170825
